FAERS Safety Report 15287499 (Version 2)
Quarter: 2018Q4

REPORT INFORMATION
  Report Type: Spontaneous
  Country: FR (occurrence: FR)
  Receive Date: 20180817
  Receipt Date: 20180828
  Transmission Date: 20190204
  Serious: Yes (Hospitalization)
  Sender: FDA-Public Use
  Company Number: FR-TEVA-2018-FR-941670

PATIENT
  Age: 79 Year
  Sex: Female
  Weight: 67 kg

DRUGS (9)
  1. COTAREG [Concomitant]
     Active Substance: HYDROCHLOROTHIAZIDE\VALSARTAN
  2. XANAX [Concomitant]
     Active Substance: ALPRAZOLAM
  3. ONBREZ BREEZHALER [Concomitant]
     Active Substance: INDACATEROL
  4. ASPEGIC (ASPIRIN) [Suspect]
     Active Substance: ASPIRIN
     Indication: PERICARDITIS
     Route: 048
     Dates: start: 20180615, end: 20180621
  5. ASPEGIC (ASPIRIN) [Suspect]
     Active Substance: ASPIRIN
     Route: 042
     Dates: start: 20180607, end: 20180615
  6. OFLOXACIN. [Suspect]
     Active Substance: OFLOXACIN
     Indication: PYELONEPHRITIS ACUTE
     Route: 048
     Dates: start: 20180616, end: 20180621
  7. ESCITALOPRAM [Concomitant]
     Active Substance: ESCITALOPRAM OXALATE
  8. LERCANIDIPINE (CHLORHYDRATE DE) [Concomitant]
     Active Substance: LERCANIDIPINE HYDROCHLORIDE
  9. COLCHIMAX, COMPRIM? PELLICUL? [Suspect]
     Active Substance: COLCHICINE\OPIUM\TIEMONIUM METHYLSULFATE
     Indication: PERICARDITIS
     Route: 048
     Dates: start: 20180608, end: 20180621

REACTIONS (3)
  - Rash [Recovered/Resolved]
  - Hypotension [Recovered/Resolved]
  - Hyperthermia [Recovered/Resolved]

NARRATIVE: CASE EVENT DATE: 20180621
